FAERS Safety Report 25490171 (Version 1)
Quarter: 2025Q2

REPORT INFORMATION
  Report Type: Spontaneous
  Country: RU (occurrence: RU)
  Receive Date: 20250628
  Receipt Date: 20250628
  Transmission Date: 20250716
  Serious: Yes (Life-Threatening, Hospitalization)
  Sender: ACCORD
  Company Number: RU-MLMSERVICE-20250612-PI536494-00218-1

PATIENT
  Age: 34 Year
  Sex: Female

DRUGS (57)
  1. ETOPOSIDE [Suspect]
     Active Substance: ETOPOSIDE
     Indication: Plasmablastic lymphoma
     Dates: start: 20230923, end: 20230927
  2. METHOTREXATE [Suspect]
     Active Substance: METHOTREXATE
     Indication: Central nervous system leukaemia
     Route: 037
     Dates: start: 2023
  3. CYCLOPHOSPHAMIDE [Suspect]
     Active Substance: CYCLOPHOSPHAMIDE
     Indication: Plasmablastic lymphoma
     Dates: start: 20230923, end: 20230927
  4. CYTARABINE [Suspect]
     Active Substance: CYTARABINE
     Indication: Central nervous system leukaemia
     Route: 037
     Dates: start: 2023
  5. DEXAMETHASONE [Suspect]
     Active Substance: DEXAMETHASONE
     Indication: Central nervous system leukaemia
     Route: 037
     Dates: start: 2023
  6. DOXORUBICIN [Suspect]
     Active Substance: DOXORUBICIN
     Indication: Plasmablastic lymphoma
     Dates: start: 20230923, end: 20230927
  7. PREDNISONE [Suspect]
     Active Substance: PREDNISONE
     Indication: Plasmablastic lymphoma
     Dates: start: 20230923, end: 20230927
  8. VINCRISTINE [Suspect]
     Active Substance: VINCRISTINE
     Indication: Plasmablastic lymphoma
     Dates: start: 20230923, end: 20230927
  9. PREDNISONE [Suspect]
     Active Substance: PREDNISONE
     Indication: Cervix carcinoma stage IV
     Dates: start: 20230923, end: 20230927
  10. METHOTREXATE [Suspect]
     Active Substance: METHOTREXATE
     Indication: Chemotherapy
     Route: 037
     Dates: start: 2023
  11. CYTARABINE [Suspect]
     Active Substance: CYTARABINE
     Indication: Chemotherapy
     Route: 037
     Dates: start: 2023
  12. DEXAMETHASONE [Suspect]
     Active Substance: DEXAMETHASONE
     Indication: Chemotherapy
     Route: 037
     Dates: start: 2023
  13. ETOPOSIDE [Suspect]
     Active Substance: ETOPOSIDE
     Indication: Metastases to lymph nodes
     Dates: start: 20230923, end: 20230927
  14. ETOPOSIDE [Suspect]
     Active Substance: ETOPOSIDE
     Indication: Metastases to abdominal cavity
     Dates: start: 20230923, end: 20230927
  15. ETOPOSIDE [Suspect]
     Active Substance: ETOPOSIDE
     Indication: Metastases to kidney
     Dates: start: 20230923, end: 20230927
  16. ETOPOSIDE [Suspect]
     Active Substance: ETOPOSIDE
     Indication: Retroperitoneal neoplasm
     Dates: start: 20230923, end: 20230927
  17. ETOPOSIDE [Suspect]
     Active Substance: ETOPOSIDE
     Indication: Thyroid neoplasm
     Dates: start: 20230923, end: 20230927
  18. ETOPOSIDE [Suspect]
     Active Substance: ETOPOSIDE
     Indication: Pancreatic carcinoma
     Dates: start: 20230923, end: 20230927
  19. ETOPOSIDE [Suspect]
     Active Substance: ETOPOSIDE
     Indication: Cardiac neoplasm malignant
     Dates: start: 20230923, end: 20230927
  20. ETOPOSIDE [Suspect]
     Active Substance: ETOPOSIDE
     Indication: Metastases to bone
     Dates: start: 20230923, end: 20230927
  21. VINCRISTINE [Suspect]
     Active Substance: VINCRISTINE
     Indication: Metastases to lymph nodes
     Dates: start: 20230923, end: 20230927
  22. VINCRISTINE [Suspect]
     Active Substance: VINCRISTINE
     Indication: Metastases to abdominal cavity
     Dates: start: 20230923, end: 20230927
  23. VINCRISTINE [Suspect]
     Active Substance: VINCRISTINE
     Indication: Metastases to kidney
     Dates: start: 20230923, end: 20230927
  24. VINCRISTINE [Suspect]
     Active Substance: VINCRISTINE
     Indication: Retroperitoneal neoplasm
     Dates: start: 20230923, end: 20230927
  25. VINCRISTINE [Suspect]
     Active Substance: VINCRISTINE
     Indication: Thyroid neoplasm
     Dates: start: 20230923, end: 20230927
  26. VINCRISTINE [Suspect]
     Active Substance: VINCRISTINE
     Indication: Pancreatic carcinoma
     Dates: start: 20230923, end: 20230927
  27. VINCRISTINE [Suspect]
     Active Substance: VINCRISTINE
     Indication: Pancreatic carcinoma
     Dates: start: 20230923, end: 20230927
  28. VINCRISTINE [Suspect]
     Active Substance: VINCRISTINE
     Indication: Cardiac neoplasm malignant
     Dates: start: 20230923, end: 20230927
  29. VINCRISTINE [Suspect]
     Active Substance: VINCRISTINE
     Indication: Metastases to bone
     Dates: start: 20230923, end: 20230927
  30. CYCLOPHOSPHAMIDE [Suspect]
     Active Substance: CYCLOPHOSPHAMIDE
     Indication: Metastases to lymph nodes
     Dates: start: 20230923, end: 20230927
  31. CYCLOPHOSPHAMIDE [Suspect]
     Active Substance: CYCLOPHOSPHAMIDE
     Indication: Metastases to abdominal cavity
     Dates: start: 20230923, end: 20230927
  32. CYCLOPHOSPHAMIDE [Suspect]
     Active Substance: CYCLOPHOSPHAMIDE
     Indication: Metastases to kidney
     Dates: start: 20230923, end: 20230927
  33. CYCLOPHOSPHAMIDE [Suspect]
     Active Substance: CYCLOPHOSPHAMIDE
     Indication: Retroperitoneal neoplasm
     Dates: start: 20230923, end: 20230927
  34. CYCLOPHOSPHAMIDE [Suspect]
     Active Substance: CYCLOPHOSPHAMIDE
     Indication: Thyroid neoplasm
     Dates: start: 20230923, end: 20230927
  35. CYCLOPHOSPHAMIDE [Suspect]
     Active Substance: CYCLOPHOSPHAMIDE
     Indication: Pancreatic carcinoma
     Dates: start: 20230923, end: 20230927
  36. CYCLOPHOSPHAMIDE [Suspect]
     Active Substance: CYCLOPHOSPHAMIDE
     Indication: Cardiac neoplasm malignant
     Dates: start: 20230923, end: 20230927
  37. CYCLOPHOSPHAMIDE [Suspect]
     Active Substance: CYCLOPHOSPHAMIDE
     Indication: Metastases to bone
     Dates: start: 20230923, end: 20230927
  38. DOXORUBICIN [Suspect]
     Active Substance: DOXORUBICIN
     Indication: Metastases to lymph nodes
     Dates: start: 20230923, end: 20230927
  39. DOXORUBICIN [Suspect]
     Active Substance: DOXORUBICIN
     Indication: Metastases to abdominal cavity
     Dates: start: 20230923, end: 20230927
  40. DOXORUBICIN [Suspect]
     Active Substance: DOXORUBICIN
     Indication: Metastases to kidney
     Dates: start: 20230923, end: 20230927
  41. DOXORUBICIN [Suspect]
     Active Substance: DOXORUBICIN
     Indication: Retroperitoneal neoplasm
     Dates: start: 20230923, end: 20230927
  42. DOXORUBICIN [Suspect]
     Active Substance: DOXORUBICIN
     Indication: Thyroid neoplasm
     Dates: start: 20230923, end: 20230927
  43. DOXORUBICIN [Suspect]
     Active Substance: DOXORUBICIN
     Indication: Pancreatic carcinoma
     Dates: start: 20230923, end: 20230927
  44. DOXORUBICIN [Suspect]
     Active Substance: DOXORUBICIN
     Indication: Cardiac neoplasm malignant
     Dates: start: 20230923, end: 20230927
  45. DOXORUBICIN [Suspect]
     Active Substance: DOXORUBICIN
     Indication: Metastases to bone
     Dates: start: 20230923, end: 20230927
  46. PREDNISONE [Suspect]
     Active Substance: PREDNISONE
     Indication: Metastases to lymph nodes
     Dates: start: 20230923, end: 20230927
  47. PREDNISONE [Suspect]
     Active Substance: PREDNISONE
     Indication: Metastases to abdominal cavity
     Dates: start: 20230923, end: 20230927
  48. PREDNISONE [Suspect]
     Active Substance: PREDNISONE
     Indication: Metastases to kidney
     Dates: start: 20230923, end: 20230927
  49. PREDNISONE [Suspect]
     Active Substance: PREDNISONE
     Indication: Retroperitoneal neoplasm
     Dates: start: 20230923, end: 20230927
  50. PREDNISONE [Suspect]
     Active Substance: PREDNISONE
     Indication: Thyroid neoplasm
     Dates: start: 20230923, end: 20230927
  51. PREDNISONE [Suspect]
     Active Substance: PREDNISONE
     Indication: Pancreatic carcinoma
     Dates: start: 20230923, end: 20230927
  52. PREDNISONE [Suspect]
     Active Substance: PREDNISONE
     Indication: Cardiac neoplasm malignant
     Dates: start: 20230923, end: 20230927
  53. PREDNISONE [Suspect]
     Active Substance: PREDNISONE
     Indication: Metastases to bone
     Dates: start: 20230923, end: 20230927
  54. ETOPOSIDE [Suspect]
     Active Substance: ETOPOSIDE
     Indication: Cervix carcinoma stage IV
     Dates: start: 20230923, end: 20230927
  55. VINCRISTINE [Suspect]
     Active Substance: VINCRISTINE
     Indication: Cervix carcinoma stage IV
     Dates: start: 20230923, end: 20230927
  56. CYCLOPHOSPHAMIDE [Suspect]
     Active Substance: CYCLOPHOSPHAMIDE
     Indication: Cervix carcinoma stage IV
     Dates: start: 20230923, end: 20230927
  57. DOXORUBICIN [Suspect]
     Active Substance: DOXORUBICIN
     Indication: Cervix carcinoma stage IV
     Dates: start: 20230923, end: 20230927

REACTIONS (14)
  - Febrile neutropenia [Unknown]
  - Hypotension [Unknown]
  - Enterocolitis [Unknown]
  - Oesophagitis ulcerative [Unknown]
  - Granulocytopenia [Not Recovered/Not Resolved]
  - Thrombocytopenia [Not Recovered/Not Resolved]
  - Anaemia [Not Recovered/Not Resolved]
  - Posterior reversible encephalopathy syndrome [Recovered/Resolved]
  - Osmotic demyelination syndrome [Recovered/Resolved]
  - Dehydration [Recovered/Resolved]
  - Hypovolaemia [Recovered/Resolved]
  - Hypernatraemia [Recovered/Resolved]
  - Diabetes insipidus [Unknown]
  - Cytotoxic lesions of corpus callosum [Recovered/Resolved]

NARRATIVE: CASE EVENT DATE: 20230928
